FAERS Safety Report 15358135 (Version 1)
Quarter: 2018Q3

REPORT INFORMATION
  Report Type: Spontaneous
  Country: AU (occurrence: US)
  Receive Date: 20180830
  Receipt Date: 20180830
  Transmission Date: 20181010
  Serious: Yes (Hospitalization)
  Sender: FDA-Public Use
  Company Number: None

PATIENT
  Age: 77 Year
  Sex: Male
  Weight: 87 kg

DRUGS (1)
  1. NEXAVAR [Suspect]
     Active Substance: SORAFENIB
     Dates: end: 20180616

REACTIONS (5)
  - Metastases to spine [None]
  - Muscular weakness [None]
  - Hepatocellular carcinoma [None]
  - Pathological fracture [None]
  - Spinal cord compression [None]

NARRATIVE: CASE EVENT DATE: 20180713
